FAERS Safety Report 8218722-3 (Version None)
Quarter: 2012Q1

REPORT INFORMATION
  Report Type: 
  Country: None (occurrence: None)
  Receive Date: 20120319
  Receipt Date: 20120309
  Transmission Date: 20120608
  Serious: Yes (Hospitalization, Other)
  Sender: FDA-Public Use
  Company Number: PHHY2011US54628

PATIENT
  Sex: Male
  Weight: 92.7 kg

DRUGS (5)
  1. EXJADE [Suspect]
     Dosage: 1500 MG, QOD
     Route: 048
  2. EXJADE [Suspect]
     Indication: MYELODYSPLASTIC SYNDROME
     Dosage: 1500 MG, DAILY
     Route: 048
     Dates: start: 20110606, end: 20110926
  3. EXJADE [Suspect]
     Dosage: 1000 MG DAILY
     Route: 048
  4. EXJADE [Suspect]
     Dosage: 1500 MG, DAILY
     Route: 048
  5. EXJADE [Suspect]
     Dosage: 2000 MG, QOD
     Route: 048

REACTIONS (7)
  - RASH [None]
  - BLOOD COUNT ABNORMAL [None]
  - LOCALISED INFECTION [None]
  - RENAL IMPAIRMENT [None]
  - COUGH [None]
  - BLOOD CREATININE INCREASED [None]
  - OROPHARYNGEAL PAIN [None]
